FAERS Safety Report 9031771 (Version 2)
Quarter: 2013Q1

REPORT INFORMATION
  Report Type: Spontaneous
  Country: JP (occurrence: JP)
  Receive Date: 20130124
  Receipt Date: 20130315
  Transmission Date: 20140127
  Serious: Yes (Hospitalization)
  Sender: FDA-Public Use
  Company Number: JP-PFIZER INC-2013020250

PATIENT
  Age: 54 Year
  Sex: Female

DRUGS (3)
  1. FLUOROURACIL [Suspect]
     Indication: COLON CANCER METASTATIC
     Dosage: UNK
  2. FOLINIC ACID [Concomitant]
     Indication: COLON CANCER METASTATIC
     Dosage: UNK
  3. OXALIPLATIN [Concomitant]
     Indication: COLON CANCER METASTATIC
     Dosage: UNK

REACTIONS (3)
  - Hyperammonaemia [Recovering/Resolving]
  - Depressed level of consciousness [Recovering/Resolving]
  - Asterixis [Recovering/Resolving]
